FAERS Safety Report 4982666-0 (Version None)
Quarter: 2006Q2

REPORT INFORMATION
  Report Type: 
  Country: None (occurrence: None)
  Receive Date: 20060425
  Receipt Date: 20050218
  Transmission Date: 20061013
  Serious: Yes (Hospitalization)
  Sender: FDA-Public Use
  Company Number: US-MERCK-0502USA02840

PATIENT
  Age: 62 Year
  Sex: Female
  Weight: 86 kg

DRUGS (10)
  1. VIOXX [Suspect]
     Indication: RHEUMATOID ARTHRITIS
     Route: 048
     Dates: start: 20000331, end: 20040324
  2. [THERAPY UNSPECIFIED] [Concomitant]
     Route: 065
  3. ALLEGRA [Concomitant]
     Route: 065
  4. AGGRENOX [Concomitant]
     Route: 065
  5. FOLIC ACID [Concomitant]
     Route: 065
  6. HYDROCODONE BITARTRATE [Concomitant]
     Route: 065
  7. ELAVIL [Concomitant]
     Route: 048
  8. ZOCOR [Concomitant]
     Route: 048
  9. METHOTREXATE [Concomitant]
     Route: 065
  10. HUMIRA [Concomitant]
     Route: 065

REACTIONS (16)
  - ACUTE MYOCARDIAL INFARCTION [None]
  - ANGINA PECTORIS [None]
  - AORTIC ANEURYSM [None]
  - ARTERIOSCLEROSIS CORONARY ARTERY [None]
  - ATRIAL FIBRILLATION [None]
  - CARDIAC FAILURE CONGESTIVE [None]
  - CEREBROVASCULAR ACCIDENT [None]
  - CHRONIC OBSTRUCTIVE PULMONARY DISEASE [None]
  - CONSTIPATION [None]
  - GASTROINTESTINAL HAEMORRHAGE [None]
  - HYPERCHOLESTEROLAEMIA [None]
  - INTERSTITIAL LUNG DISEASE [None]
  - PERIPHERAL VASCULAR DISORDER [None]
  - RENAL DISORDER [None]
  - TORSADE DE POINTES [None]
  - UPPER RESPIRATORY TRACT INFECTION [None]
